FAERS Safety Report 18467229 (Version 1)
Quarter: 2020Q4

REPORT INFORMATION
  Report Type: Spontaneous
  Country: US (occurrence: US)
  Receive Date: 20201104
  Receipt Date: 20201104
  Transmission Date: 20210114
  Serious: Yes (Life-Threatening, Hospitalization)
  Sender: FDA-Public Use
  Company Number: None

PATIENT
  Age: 49 Year
  Sex: Male
  Weight: 178 kg

DRUGS (1)
  1. BUPRENORPHINE (BUPRENORPHINE 15MCG/HR PATCH) [Suspect]
     Active Substance: BUPRENORPHINE
     Indication: PAIN
     Route: 061
     Dates: start: 20200529, end: 20200602

REACTIONS (4)
  - Overdose [None]
  - Bradycardia [None]
  - Loss of consciousness [None]
  - Respiratory rate decreased [None]

NARRATIVE: CASE EVENT DATE: 20200602
